FAERS Safety Report 4609835-3 (Version None)
Quarter: 2005Q1

REPORT INFORMATION
  Report Type: 
  Country: None (occurrence: None)
  Receive Date: 20050316
  Receipt Date: 20050222
  Transmission Date: 20050727
  Serious: Yes (Life-Threatening, Other)
  Sender: FDA-Public Use
  Company Number: 200510604JP

PATIENT
  Age: 71 Year
  Sex: Male

DRUGS (11)
  1. KETEK [Suspect]
     Indication: NASAL CONGESTION
     Route: 048
     Dates: start: 20040720, end: 20050217
  2. KETEK [Suspect]
     Indication: PHARYNGITIS
     Route: 048
     Dates: start: 20040720, end: 20050217
  3. KETEK [Suspect]
     Indication: SINUSITIS
     Route: 048
     Dates: start: 20040720, end: 20050217
  4. THEO-DUR [Concomitant]
     Indication: ASTHMA
  5. MUCODYNE [Concomitant]
     Indication: INFECTION
  6. HOKUNALIN [Concomitant]
  7. ASPIRIN [Concomitant]
     Indication: CEREBRAL INFARCTION
  8. ANTIHYPERTENSIVES [Concomitant]
  9. DASEN [Concomitant]
     Indication: INFECTION
     Dates: start: 20050215
  10. LOXONIN [Concomitant]
     Indication: INFECTION
     Dates: start: 20050215
  11. ALLELOCK [Concomitant]
     Indication: NASAL CONGESTION
     Dates: start: 20040720

REACTIONS (8)
  - HYPERSOMNIA [None]
  - INFLUENZA SEROLOGY [None]
  - LOSS OF CONSCIOUSNESS [None]
  - NASAL POLYPS [None]
  - RHINITIS [None]
  - ROAD TRAFFIC ACCIDENT [None]
  - THERAPY NON-RESPONDER [None]
  - TINNITUS [None]
